FAERS Safety Report 17388229 (Version 1)
Quarter: 2020Q1

REPORT INFORMATION
  Report Type: Spontaneous
  Country: US (occurrence: US)
  Receive Date: 20200123
  Receipt Date: 20200123
  Transmission Date: 20200409
  Serious: Yes (Hospitalization)
  Sender: FDA-Public Use
  Company Number: None

PATIENT
  Age: 40 Year
  Sex: Female

DRUGS (3)
  1. HUMIRA [Suspect]
     Active Substance: ADALIMUMAB
     Indication: RHEUMATOID ARTHRITIS
     Dosage: ?          OTHER DOSE:40MG/0.8ML;OTHER FREQUENCY:EVERY 2 WEEKS;?
     Route: 058
     Dates: start: 20190517
  2. PREDNISONE TAB [Concomitant]
     Active Substance: PREDNISONE
  3. LEVOFLOXAACIN TAB [Concomitant]

REACTIONS (2)
  - Pneumonia [None]
  - Pneumothorax [None]

NARRATIVE: CASE EVENT DATE: 20191228
